FAERS Safety Report 23885743 (Version 1)
Quarter: 2024Q2

REPORT INFORMATION
  Report Type: Spontaneous
  Country: FR (occurrence: FR)
  Receive Date: 20240522
  Receipt Date: 20240522
  Transmission Date: 20240716
  Serious: Yes (Other)
  Sender: FDA-Public Use
  Company Number: None

PATIENT
  Age: 68 Year
  Sex: Female
  Weight: 105 kg

DRUGS (4)
  1. SEVOFLURANE [Suspect]
     Active Substance: SEVOFLURANE
     Indication: General anaesthesia
     Dosage: NON PRECISEE
     Route: 042
     Dates: start: 20230614, end: 20230614
  2. DIPRIVAN [Suspect]
     Active Substance: ISOPROPYL ALCOHOL\PROPOFOL
     Indication: General anaesthesia
     Dosage: NON PRECISEE
     Route: 042
     Dates: start: 20230614, end: 20230614
  3. KETAMINE [Suspect]
     Active Substance: KETAMINE
     Indication: General anaesthesia
     Dosage: NON PRECISEE
     Route: 042
     Dates: start: 20230614, end: 20230614
  4. MIDAZOLAM [Suspect]
     Active Substance: MIDAZOLAM
     Indication: General anaesthesia
     Dosage: NON PR?CIS?E
     Route: 042
     Dates: start: 20230614, end: 20230614

REACTIONS (1)
  - Unwanted awareness during anaesthesia [Recovered/Resolved]

NARRATIVE: CASE EVENT DATE: 20230614
